FAERS Safety Report 9997265 (Version 1)
Quarter: 2014Q1

REPORT INFORMATION
  Report Type: Spontaneous
  Country: US (occurrence: None)
  Receive Date: 20140218
  Receipt Date: 20140218
  Transmission Date: 20141002
  Serious: Yes (Other)
  Sender: FDA-Public Use
  Company Number: 1000051516

PATIENT
  Age: 34 Year
  Sex: Male

DRUGS (7)
  1. VIIBRYD (VILAZODONE HYDROCHLORIDE) (10 MILLIGRAM, TABLETS) [Suspect]
     Indication: DEPRESSION
     Dosage: 1 IN 1 D
     Route: 048
     Dates: start: 201310, end: 2013
  2. VIIBRYD (VILAZODONE HYDROCHLORIDE) (40 MILLIGRAM, TABLETS) [Suspect]
     Indication: DEPRESSION
     Dosage: 1 IN 1 D
     Route: 048
     Dates: start: 2013, end: 2013
  3. LISINOPRIL [Concomitant]
  4. PROTONIX (PANTOPRAZOLE SODIUM SESQUIHYDRATE) [Concomitant]
  5. CLONAZEPAM [Concomitant]
  6. ALPRAZOLAM [Concomitant]
  7. ALBUTEROL [Concomitant]

REACTIONS (4)
  - Dysgeusia [None]
  - Diarrhoea [None]
  - Abdominal discomfort [None]
  - Vomiting [None]
